FAERS Safety Report 16597289 (Version 2)
Quarter: 2019Q3

REPORT INFORMATION
  Report Type: Spontaneous
  Country: US (occurrence: US)
  Receive Date: 20190719
  Receipt Date: 20190724
  Transmission Date: 20191004
  Serious: No
  Sender: FDA-Public Use
  Company Number: PHEH2019US029796

PATIENT
  Sex: Male

DRUGS (2)
  1. MEKINIST [Suspect]
     Active Substance: TRAMETINIB DIMETHYL SULFOXIDE
     Indication: CEREBRAL DISORDER
     Dosage: 0.5 MG, QD
     Route: 048
     Dates: start: 201906
  2. TAFINLAR [Suspect]
     Active Substance: DABRAFENIB MESYLATE
     Indication: CEREBRAL DISORDER
     Dosage: UNK
     Route: 065

REACTIONS (4)
  - Nail infection [Unknown]
  - Rash [Unknown]
  - Product use in unapproved indication [Unknown]
  - Product use issue [Unknown]
